FAERS Safety Report 9758872 (Version 1)
Quarter: 2013Q4

REPORT INFORMATION
  Report Type: Spontaneous
  Country: US (occurrence: None)
  Receive Date: 20131216
  Receipt Date: 20131216
  Transmission Date: 20140711
  Serious: No
  Sender: FDA-Public Use
  Company Number: 1303USA007940

PATIENT
  Sex: Female

DRUGS (4)
  1. ZIOPTAN (TAFLUPROST) EYE DROPS, SOLUTION 0.0015% [Suspect]
  2. SYNTHROID (LEVOTHYROXINE SODIUM) [Concomitant]
  3. MICARDIS (TELMISARTAN) [Concomitant]
  4. VITAMINS (UNSPECIFIED) (VITAMINS (UNSPECIFIED)) [Concomitant]

REACTIONS (1)
  - Foreign body sensation in eyes [None]
